FAERS Safety Report 22639698 (Version 3)
Quarter: 2024Q4

REPORT INFORMATION
  Report Type: Spontaneous
  Country: FR (occurrence: FR)
  Receive Date: 20230626
  Receipt Date: 20241125
  Transmission Date: 20250115
  Serious: Yes (Hospitalization, Disabling, Other)
  Sender: ORGANON
  Company Number: FR-009507513-1104FRA00088

PATIENT
  Age: 24 Year
  Sex: Male
  Weight: 60 kg

DRUGS (4)
  1. PROPECIA [Suspect]
     Active Substance: FINASTERIDE
     Indication: Alopecia
     Dosage: 1 MILLIGRAM, QD
     Route: 048
     Dates: start: 20101126, end: 20110328
  2. PROPECIA [Suspect]
     Active Substance: FINASTERIDE
     Indication: Androgenetic alopecia
  3. FINASTERIDE [Suspect]
     Active Substance: FINASTERIDE
     Dosage: 1.25 MG, QD
     Route: 048
     Dates: start: 20101127, end: 201102
  4. FINASTERIDE [Suspect]
     Active Substance: FINASTERIDE
     Dosage: 1 DOSAGE FORM (1.25 MG), QD
     Route: 048
     Dates: start: 201103

REACTIONS (29)
  - Pollakiuria [Not Recovered/Not Resolved]
  - Pudendal canal syndrome [Unknown]
  - Tachycardia [Unknown]
  - Palpitations [Unknown]
  - Erectile dysfunction [Not Recovered/Not Resolved]
  - Loss of libido [Not Recovered/Not Resolved]
  - Irritable bowel syndrome [Unknown]
  - Cystitis noninfective [Unknown]
  - Genital paraesthesia [Unknown]
  - Candida infection [Unknown]
  - Testicular pain [Recovered/Resolved]
  - Ejaculation disorder [Unknown]
  - Depression [Not Recovered/Not Resolved]
  - Major depression [Not Recovered/Not Resolved]
  - Suicidal ideation [Not Recovered/Not Resolved]
  - Penile haemorrhage [Not Recovered/Not Resolved]
  - Genital burning sensation [Not Recovered/Not Resolved]
  - Generalised anxiety disorder [Recovering/Resolving]
  - Foreign body in reproductive tract [Not Recovered/Not Resolved]
  - Anhedonia [Not Recovered/Not Resolved]
  - Fatigue [Not Recovered/Not Resolved]
  - Disturbance in attention [Not Recovered/Not Resolved]
  - Urethral meatus stenosis [Not Recovered/Not Resolved]
  - Sleep disorder [Not Recovered/Not Resolved]
  - Androgenetic alopecia [Not Recovered/Not Resolved]
  - Male reproductive tract disorder [Not Recovered/Not Resolved]
  - Orgasm abnormal [Not Recovered/Not Resolved]
  - Infertility male [Not Recovered/Not Resolved]
  - Libido decreased [Not Recovered/Not Resolved]

NARRATIVE: CASE EVENT DATE: 20110101
